FAERS Safety Report 5622656-8 (Version None)
Quarter: 2008Q1

REPORT INFORMATION
  Report Type: 
  Country: None (occurrence: None)
  Receive Date: 20080211
  Receipt Date: 20080211
  Transmission Date: 20080703
  Serious: Yes (Disabling)
  Sender: FDA-Public Use
  Company Number: None

PATIENT
  Sex: Female
  Weight: 68.0396 kg

DRUGS (1)
  1. FLUOXETINE [Suspect]
     Indication: DEPRESSION
     Dosage: 20 MG PO Q2
     Route: 048

REACTIONS (6)
  - ABDOMINAL DISCOMFORT [None]
  - AFFECT LABILITY [None]
  - COUGH [None]
  - INSOMNIA [None]
  - OBSESSIVE THOUGHTS [None]
  - PHARMACEUTICAL PRODUCT COMPLAINT [None]
